FAERS Safety Report 5066818-X (Version None)
Quarter: 2006Q3

REPORT INFORMATION
  Report Type: 
  Country: None (occurrence: None)
  Receive Date: 20060801
  Receipt Date: 20050603
  Transmission Date: 20061208
  Serious: Yes (Life-Threatening)
  Sender: FDA-Public Use
  Company Number: 2005SE03346

PATIENT
  Sex: Female
  Weight: 74 kg

DRUGS (6)
  1. SEROQUEL [Suspect]
     Indication: SCHIZOPHRENIA
     Route: 048
     Dates: start: 20021001, end: 20050401
  2. ZELDOX [Interacting]
  3. ZELDOX [Interacting]
     Dates: start: 20021001, end: 20050601
  4. CEPREMIL [Interacting]
     Dates: start: 20021201, end: 20050814
  5. ABILIFY [Interacting]
     Indication: SCHIZOPHRENIA
     Dates: start: 20050401, end: 20050814
  6. CONTRACEPTIVS [Concomitant]

REACTIONS (10)
  - ABDOMINAL PAIN UPPER [None]
  - CARDIAC DISCOMFORT [None]
  - COLD SWEAT [None]
  - DRUG INTERACTION [None]
  - DYSPNOEA [None]
  - FATIGUE [None]
  - HEADACHE [None]
  - MENTAL DISORDER [None]
  - NAUSEA [None]
  - PALPITATIONS [None]
